FAERS Safety Report 13351203 (Version 1)
Quarter: 2017Q1

REPORT INFORMATION
  Report Type: Spontaneous
  Country: ID (occurrence: ID)
  Receive Date: 20170320
  Receipt Date: 20170320
  Transmission Date: 20170429
  Serious: Yes (Life-Threatening)
  Sender: FDA-Public Use
  Company Number: ID-BAUSCH-BL-2017-007157

PATIENT
  Age: 6 Decade
  Sex: Male

DRUGS (1)
  1. TALION [Suspect]
     Active Substance: BEPOTASTINE
     Indication: URTICARIA
     Route: 048

REACTIONS (2)
  - Abdominal discomfort [Unknown]
  - Palpitations [Unknown]

NARRATIVE: CASE EVENT DATE: 201702
